FAERS Safety Report 8812074 (Version 3)
Quarter: 2012Q4

REPORT INFORMATION
  Report Type: 
  Country: US (occurrence: US)
  Receive Date: 20120927
  Receipt Date: 20121123
  Transmission Date: 20130627
  Serious: Yes (Death, Life-Threatening, Hospitalization)
  Sender: FDA-Public Use
  Company Number: US-PFIZER INC-2012176420

PATIENT
  Age: 41 Year
  Sex: Male
  Weight: 98.87 kg

DRUGS (20)
  1. NEORAL [Suspect]
     Indication: KIDNEY TRANSPLANT REJECTION
     Dosage: 175 mg, 2x/day (350 mg TDD)
     Route: 048
     Dates: start: 20090520, end: 20120719
  2. NEORAL [Suspect]
     Indication: IMMUNOSUPPRESSION
  3. AMIODARONE HCL [Suspect]
     Indication: PAROXYSMAL ATRIAL FIBRILLATION
     Dosage: 200 mg, 1x/day
     Route: 048
     Dates: start: 20110224, end: 20120620
  4. CELLCEPT [Concomitant]
     Indication: IMMUNOSUPPRESSION
     Dosage: 1000 mg, 2x/day
     Route: 048
     Dates: start: 20080513
  5. PREDNISONE [Concomitant]
     Indication: IMMUNOSUPPRESSION
     Dosage: 20 mg, 1x/day
     Route: 048
     Dates: start: 20120618, end: 20120630
  6. PREDNISONE [Concomitant]
     Dosage: 40 mg, 1x/day
     Route: 048
     Dates: start: 20120603, end: 20120617
  7. LASIX [Concomitant]
     Indication: HYPERTENSION
     Dosage: 20 mg, 1x/day
     Route: 048
     Dates: start: 20120711
  8. METOPROLOL [Concomitant]
     Indication: HYPERTENSION
     Dosage: 50 mg, 2x/day
     Route: 048
     Dates: start: 20120502
  9. NORVASC [Concomitant]
     Indication: HYPERTENSION
     Dosage: 10 mg, 1x/day
     Route: 048
     Dates: start: 20120705
  10. DAPSONE [Concomitant]
     Indication: ANTI-INFECTIVE THERAPY
     Dosage: 100 mg, 1x/day
     Route: 048
     Dates: start: 20120705
  11. FLUCONAZOLE [Concomitant]
     Indication: THRUSH
     Dosage: 100 mg, UNK
     Route: 048
     Dates: start: 20120717
  12. OMEPRAZOLE [Concomitant]
     Indication: PROPHYLAXIS
     Dosage: 20 mg, 2x/day
     Route: 048
     Dates: start: 20120705
  13. CRESTOR [Concomitant]
     Indication: METABOLIC DISORDER
     Dosage: 10 mg, 1x/day
     Route: 048
     Dates: start: 20120718
  14. MAGNESIUM OXIDE [Concomitant]
     Indication: METABOLIC DISORDER
     Dosage: 800 mg, 2x/day
     Route: 048
     Dates: start: 20120608
  15. RENAGEL [Concomitant]
     Indication: METABOLIC DISORDER
     Dosage: 2400 mg, 3x/day
     Route: 048
     Dates: start: 20120705
  16. SODIUM BICARBONATE [Concomitant]
     Indication: METABOLIC DISORDER
     Dosage: 1950 mg, 3x/day
     Route: 048
     Dates: start: 20120608
  17. VITAMIN D [Concomitant]
     Indication: METABOLIC DISORDER
     Dosage: 1000 Units, UNK
     Route: 048
     Dates: start: 20111108
  18. ACETYLSALICYLIC ACID [Concomitant]
     Indication: ANTI-PLATELET ANTIBODY
     Dosage: 81 mg, 1x/day
     Route: 048
     Dates: start: 20081116
  19. EFFIENT [Concomitant]
     Indication: ANTI-PLATELET ANTIBODY
     Dosage: 10 mg, 1x/day
     Route: 048
     Dates: start: 20120502
  20. NYSTATIN [Concomitant]
     Indication: THRUSH
     Dosage: UNK
     Dates: start: 20120712, end: 20120717

REACTIONS (2)
  - Respiratory failure [Fatal]
  - Pneumonia [Fatal]
